FAERS Safety Report 16099834 (Version 1)
Quarter: 2019Q1

REPORT INFORMATION
  Report Type: Spontaneous
  Country: BR (occurrence: BR)
  Receive Date: 20190321
  Receipt Date: 20190321
  Transmission Date: 20190418
  Serious: Yes (Death)
  Sender: FDA-Public Use
  Company Number: BR-B.I. PHARMACEUTICALS,INC./RIDGEFIELD-2019-BI-012558

PATIENT
  Age: 3 Year
  Sex: Female

DRUGS (2)
  1. ATROVENT [Suspect]
     Active Substance: IPRATROPIUM BROMIDE
     Indication: PRODUCT USED FOR UNKNOWN INDICATION
     Route: 055
     Dates: start: 20190314
  2. BEROTEC [Suspect]
     Active Substance: FENOTEROL HYDROBROMIDE
     Indication: PRODUCT USED FOR UNKNOWN INDICATION
     Route: 055
     Dates: start: 20190314

REACTIONS (6)
  - Cardio-respiratory arrest [Fatal]
  - Dyspnoea [Unknown]
  - Depressed level of consciousness [Unknown]
  - Pyrexia [Fatal]
  - Meningitis [Fatal]
  - Purpura [Unknown]

NARRATIVE: CASE EVENT DATE: 20190314
